FAERS Safety Report 9276292 (Version 4)
Quarter: 2013Q4

REPORT INFORMATION
  Report Type: Report from Study
  Country: CA (occurrence: CA)
  Receive Date: 20130507
  Receipt Date: 20131205
  Transmission Date: 20140711
  Serious: No
  Sender: FDA-Public Use
  Company Number: PHHY2013CA044911

PATIENT
  Age: 46 Year
  Sex: Male

DRUGS (6)
  1. TASIGNA [Suspect]
     Indication: CHRONIC MYELOID LEUKAEMIA
     Dosage: 200 MG, BID
     Route: 048
     Dates: start: 201208
  2. TASIGNA [Suspect]
     Dosage: 400 MG, BID
     Route: 048
  3. TASIGNA [Suspect]
     Dosage: 200 MG, BID
     Route: 048
  4. TASIGNA [Suspect]
     Dosage: 400 MG, BID
  5. TASIGNA [Suspect]
     Dosage: 300 MG, BID
     Route: 048
     Dates: start: 201304
  6. ANTIDEPRESSANTS [Concomitant]
     Indication: DEPRESSION

REACTIONS (7)
  - Incorrect dose administered [Unknown]
  - Pruritus [Recovered/Resolved]
  - Alopecia [Recovering/Resolving]
  - White blood cell count decreased [Unknown]
  - Therapy responder [Unknown]
  - Rash [Recovering/Resolving]
  - Acne [Unknown]
